FAERS Safety Report 4855500-7 (Version None)
Quarter: 2005Q4

REPORT INFORMATION
  Report Type: 
  Country: None (occurrence: None)
  Receive Date: 20051214
  Receipt Date: 20051202
  Transmission Date: 20060501
  Serious: Yes (Other)
  Sender: FDA-Public Use
  Company Number: 2005154168

PATIENT
  Age: 65 Year
  Sex: Female
  Weight: 99.7913 kg

DRUGS (10)
  1. LIPITOR [Suspect]
     Indication: HYPERLIPIDAEMIA
     Dosage: 10 MG (10 MG, 1 IN 1 D), ORAL
     Route: 048
  2. ZOLOFT [Suspect]
     Indication: AFFECT LABILITY
     Dosage: 50 MG (50 MG, 1 IN 1 D), ORAL
     Route: 048
  3. ZOLOFT [Suspect]
     Indication: DEPRESSION
     Dosage: 50 MG (50 MG, 1 IN 1 D), ORAL
     Route: 048
  4. ZETIA [Concomitant]
  5. HUMALIN (INSULIN) [Concomitant]
  6. AVANDIA [Concomitant]
  7. AMARYL [Concomitant]
  8. GLUCOPHAGE [Concomitant]
  9. INSULIN [Concomitant]
  10. LISINOPRIL [Concomitant]

REACTIONS (4)
  - AFFECT LABILITY [None]
  - ARTHRITIS [None]
  - CARPAL TUNNEL SYNDROME [None]
  - SUICIDAL IDEATION [None]
